FAERS Safety Report 14254943 (Version 3)
Quarter: 2017Q4

REPORT INFORMATION
  Report Type: Report from Study
  Country: BE (occurrence: BE)
  Receive Date: 20171206
  Receipt Date: 20171220
  Transmission Date: 20180321
  Serious: Yes (Hospitalization)
  Sender: FDA-Public Use
  Company Number: PHHY2016BE185474

PATIENT
  Age: 63 Year
  Sex: Female

DRUGS (8)
  1. VINCRISTINE [Suspect]
     Active Substance: VINCRISTINE
     Indication: ACUTE LYMPHOCYTIC LEUKAEMIA
     Dosage: 1 MG, QD
     Route: 065
     Dates: start: 20161012, end: 20161026
  2. GLIVEC [Suspect]
     Active Substance: IMATINIB MESYLATE
     Indication: PRODUCT USED FOR UNKNOWN INDICATION
     Dosage: UNK
     Route: 065
  3. PREDNISOLONE SODIUM PHOSPHATE. [Suspect]
     Active Substance: PREDNISOLONE SODIUM PHOSPHATE
     Indication: ACUTE LYMPHOCYTIC LEUKAEMIA
     Dosage: 80 MG, UNK
     Route: 065
     Dates: start: 20161012, end: 20161031
  4. ADRIAMYCIN [Suspect]
     Active Substance: DOXORUBICIN HYDROCHLORIDE
     Indication: ACUTE LYMPHOCYTIC LEUKAEMIA
     Dosage: 82 MG, QD
     Route: 065
     Dates: start: 20161019
  5. DOXORUBICIN [Suspect]
     Active Substance: DOXORUBICIN
     Indication: IMMUNOSUPPRESSION
     Dosage: 82 MG, UNK
     Route: 065
  6. DEXAMETHASONE. [Suspect]
     Active Substance: DEXAMETHASONE
     Indication: ACUTE LYMPHOCYTIC LEUKAEMIA
     Dosage: 4 MG, UNK
     Route: 037
  7. CLOFARABINE. [Suspect]
     Active Substance: CLOFARABINE
     Indication: ACUTE LYMPHOCYTIC LEUKAEMIA
     Dosage: 60 MG, UNK
     Route: 065
     Dates: start: 20161005, end: 20161009
  8. METHOTREXATE. [Suspect]
     Active Substance: METHOTREXATE
     Indication: ACUTE LYMPHOCYTIC LEUKAEMIA
     Dosage: 15 MG, UNK
     Route: 037

REACTIONS (4)
  - Drug-induced liver injury [Recovered/Resolved]
  - Stomatitis [Recovered/Resolved]
  - Oesophageal ulcer [Recovered/Resolved]
  - Ileus paralytic [Recovered/Resolved]

NARRATIVE: CASE EVENT DATE: 20161010
